FAERS Safety Report 16763109 (Version 1)
Quarter: 2019Q3

REPORT INFORMATION
  Report Type: Report from Study
  Country: US (occurrence: US)
  Receive Date: 20190902
  Receipt Date: 20190902
  Transmission Date: 20191005
  Serious: Yes (Other)
  Sender: FDA-Public Use
  Company Number: US-BRISTOL-MYERS SQUIBB COMPANY-BMS-2019-083743

PATIENT
  Age: 35 Year
  Sex: Male

DRUGS (4)
  1. INTERLEUKIN-2 [Concomitant]
     Active Substance: ALDESLEUKIN
     Indication: METASTATIC MALIGNANT MELANOMA
     Route: 065
  2. IPILIMUMAB [Suspect]
     Active Substance: IPILIMUMAB
     Indication: METASTATIC MALIGNANT MELANOMA
     Route: 065
  3. INTERFERON [Concomitant]
     Active Substance: INTERFERON
     Indication: METASTATIC MALIGNANT MELANOMA
     Route: 065
  4. PEMBROLIZUMAB. [Suspect]
     Active Substance: PEMBROLIZUMAB
     Indication: METASTATIC MALIGNANT MELANOMA
     Route: 065

REACTIONS (8)
  - Diarrhoea [Unknown]
  - Hyperbilirubinaemia [Unknown]
  - Acute kidney injury [Unknown]
  - Nausea [Unknown]
  - Vomiting [Unknown]
  - Autoimmune arthritis [Unknown]
  - Parapsoriasis [Unknown]
  - Fatigue [Unknown]
